FAERS Safety Report 8123458-3 (Version None)
Quarter: 2012Q1

REPORT INFORMATION
  Report Type: 
  Country: None (occurrence: None)
  Receive Date: 20120208
  Receipt Date: 20120127
  Transmission Date: 20120608
  Serious: Yes (Other)
  Sender: FDA-Public Use
  Company Number: PHEH2011US009470

PATIENT
  Sex: Male
  Weight: 123 kg

DRUGS (5)
  1. CIALIS [Concomitant]
     Dosage: 20 MG, PRN
  2. LISINOPRIL [Concomitant]
     Indication: HYPERTENSION
     Dosage: 20 MG/DAY
     Dates: start: 20070912
  3. GILENYA [Suspect]
     Indication: MULTIPLE SCLEROSIS
     Dosage: 0.5 MG, DAILY
     Route: 048
     Dates: start: 20070701
  4. ASPIRIN [Concomitant]
     Dosage: 325 MG/DAY
     Dates: start: 20100529
  5. METOPROLOL [Concomitant]
     Indication: HEART RATE IRREGULAR
     Dosage: 50 MG/DAY
     Dates: start: 20100524

REACTIONS (1)
  - ATRIAL FIBRILLATION [None]
